FAERS Safety Report 12471006 (Version 1)
Quarter: 2016Q2

REPORT INFORMATION
  Report Type: Spontaneous
  Country: US (occurrence: None)
  Receive Date: 20160615
  Receipt Date: 20160615
  Transmission Date: 20160815
  Serious: No
  Sender: FDA-Public Use
  Company Number: None

PATIENT
  Age: 83 Year
  Sex: Female

DRUGS (16)
  1. HUMALOG [Concomitant]
     Active Substance: INSULIN LISPRO
  2. ESBRIET [Suspect]
     Active Substance: PIRFENIDONE
     Indication: IDIOPATHIC PULMONARY FIBROSIS
     Route: 048
     Dates: start: 20160427
  3. LISINOPRIL. [Concomitant]
     Active Substance: LISINOPRIL
  4. COREG [Concomitant]
     Active Substance: CARVEDILOL
  5. LASIX [Concomitant]
     Active Substance: FUROSEMIDE
  6. ACARBO [Concomitant]
  7. SYMBICORT [Concomitant]
     Active Substance: BUDESONIDE\FORMOTEROL FUMARATE DIHYDRATE
  8. LIPITOR [Concomitant]
     Active Substance: ATORVASTATIN CALCIUM
  9. GLIMEPIRIDE. [Concomitant]
     Active Substance: GLIMEPIRIDE
  10. SYNTHROID [Concomitant]
     Active Substance: LEVOTHYROXINE SODIUM
  11. NORVASC [Concomitant]
     Active Substance: AMLODIPINE BESYLATE
  12. JANUVIA [Concomitant]
     Active Substance: SITAGLIPTIN PHOSPHATE
  13. KCL [Concomitant]
     Active Substance: POTASSIUM CHLORIDE
  14. NEURONTIN [Concomitant]
     Active Substance: GABAPENTIN
  15. BYDUREON [Concomitant]
     Active Substance: EXENATIDE
  16. NORCO [Concomitant]
     Active Substance: ACETAMINOPHEN\HYDROCODONE BITARTRATE

REACTIONS (3)
  - Blood glucose increased [None]
  - Blood pressure increased [None]
  - Gastrooesophageal reflux disease [None]

NARRATIVE: CASE EVENT DATE: 201605
